FAERS Safety Report 14479997 (Version 2)
Quarter: 2018Q1

REPORT INFORMATION
  Report Type: Spontaneous
  Country: AT (occurrence: AT)
  Receive Date: 20180202
  Receipt Date: 20180212
  Transmission Date: 20180509
  Serious: Yes (Hospitalization)
  Sender: FDA-Public Use
  Company Number: AT-ASTRAZENECA-2018SE10759

PATIENT
  Age: 665 Month
  Sex: Male
  Weight: 65 kg

DRUGS (2)
  1. THROMBOASS [Concomitant]
     Active Substance: ASPIRIN
     Route: 048
  2. SAXAGLIPTIN [Suspect]
     Active Substance: SAXAGLIPTIN
     Indication: TYPE 2 DIABETES MELLITUS
     Dosage: 5/10 MILLIGRAMS, ONCE DAILY
     Route: 048
     Dates: end: 20180123

REACTIONS (1)
  - Ketoacidosis [Recovered/Resolved]

NARRATIVE: CASE EVENT DATE: 20180123
